FAERS Safety Report 5562927-7 (Version None)
Quarter: 2007Q4

REPORT INFORMATION
  Report Type: 
  Country: None (occurrence: None)
  Receive Date: 20071217
  Receipt Date: 20071206
  Transmission Date: 20080405
  Serious: Yes (Other)
  Sender: FDA-Public Use
  Company Number: US-JNJFOC-20071203122

PATIENT
  Sex: Male

DRUGS (7)
  1. REMICADE [Suspect]
     Indication: RHEUMATOID ARTHRITIS
     Route: 042
  2. REMICADE [Suspect]
     Indication: PSORIATIC ARTHROPATHY
     Route: 042
  3. GENTAMICIN [Suspect]
     Indication: PROPHYLAXIS
     Route: 030
  4. CELEBREX [Concomitant]
  5. PRILOSEC [Concomitant]
     Indication: GASTROINTESTINAL DISORDER THERAPY
  6. VASOTEC [Concomitant]
     Indication: MIGRAINE PROPHYLAXIS
  7. IMITREX [Concomitant]

REACTIONS (2)
  - BLADDER MASS [None]
  - INJECTION SITE REACTION [None]
